FAERS Safety Report 24661565 (Version 10)
Quarter: 2025Q4

REPORT INFORMATION
  Report Type: Report from Study
  Country: CN (occurrence: CN)
  Receive Date: 20241125
  Receipt Date: 20251224
  Transmission Date: 20260118
  Serious: Yes (Death, Life-Threatening, Hospitalization, Other)
  Sender: PFIZER
  Company Number: CN-TAKEDA-2023TUS038939

PATIENT
  Age: 67 Year
  Sex: Female

DRUGS (18)
  1. BRENTUXIMAB VEDOTIN [Suspect]
     Active Substance: BRENTUXIMAB VEDOTIN
     Indication: Diffuse large B-cell lymphoma
     Dosage: 100 MG, EVERY 3 WEEKS
     Route: 041
     Dates: start: 20230318
  2. RITUXIMAB [Suspect]
     Active Substance: RITUXIMAB
     Indication: Diffuse large B-cell lymphoma
     Dosage: 600 MG
     Dates: start: 20230317
  3. AMPHOTERICIN B CHOLESTERYL SULFATE [Suspect]
     Active Substance: AMPHOTERICIN B CHOLESTERYL SULFATE
     Dosage: UNK
  4. DEXTROSE [Suspect]
     Active Substance: DEXTROSE MONOHYDRATE
     Dosage: UNK
  5. METHYLCOBALAMIN [Concomitant]
     Active Substance: METHYLCOBALAMIN
     Indication: Neuropathy peripheral
     Dosage: 500 UG, 1X/DAY
     Route: 042
     Dates: start: 20230317, end: 20230318
  6. POTASSIUM CHLORIDE [Concomitant]
     Active Substance: POTASSIUM CHLORIDE
     Indication: Hypokalaemia
     Dosage: 1 G, 3X/DAY
     Route: 048
     Dates: start: 20230317, end: 20230318
  7. PROMETHAZINE [Concomitant]
     Active Substance: PROMETHAZINE HYDROCHLORIDE
     Indication: Allergy prophylaxis
     Dosage: 25 MG, 1X/DAY
     Route: 030
     Dates: start: 20230318, end: 20230318
  8. DEXAMETHASONE SODIUM PHOSPHATE [Concomitant]
     Active Substance: DEXAMETHASONE SODIUM PHOSPHATE
     Indication: Allergy prophylaxis
     Dosage: 5 MG, 1X/DAY
     Route: 042
     Dates: start: 20230318, end: 20230318
  9. MAGNESIUM ISOGLYCYRRHIZINATE [Concomitant]
     Active Substance: MAGNESIUM ISOGLYCYRRHIZINATE
     Indication: Prophylaxis
     Dosage: 40 ML, 1X/DAY
     Route: 042
     Dates: start: 20230318, end: 20230318
  10. SODIUM BICARBONATE [Concomitant]
     Active Substance: SODIUM BICARBONATE
     Indication: Blood alkalinisation therapy
     Dosage: 125 ML, 1X/DAY
     Route: 042
     Dates: start: 20230318, end: 20230318
  11. GLUTATHIONE [Concomitant]
     Active Substance: GLUTATHIONE
     Indication: Prophylaxis
     Dosage: 2.4 G, 1X/DAY
     Route: 042
     Dates: start: 20230318, end: 20230318
  12. GLUTATHIONE [Concomitant]
     Active Substance: GLUTATHIONE
     Indication: Antioxidant therapy
  13. POTASSIUM CHLORIDE [Concomitant]
     Active Substance: POTASSIUM CHLORIDE
     Indication: Hypokalaemia
     Dosage: 15 ML, 1X/DAY
     Route: 042
     Dates: start: 20230318, end: 20230318
  14. VITAMIN B6 [Concomitant]
     Active Substance: PYRIDOXINE HYDROCHLORIDE
     Indication: Vitamin supplementation
     Dosage: 0.2 G, 1X/DAY
     Route: 042
     Dates: start: 20230318, end: 20230318
  15. FUROSEMIDE [Concomitant]
     Active Substance: FUROSEMIDE
     Indication: Polyuria
     Dosage: 10 MG, 1X/DAY
     Route: 042
     Dates: start: 20230318, end: 20230318
  16. FAMOTIDINE [Concomitant]
     Active Substance: FAMOTIDINE
     Indication: Prophylaxis
     Dosage: 20 MG
     Route: 042
     Dates: start: 20230318, end: 20230318
  17. ZANUBRUTINIB [Concomitant]
     Active Substance: ZANUBRUTINIB
     Indication: Diffuse large B-cell lymphoma
     Dosage: 160 MG, 2X/DAY
     Route: 048
     Dates: start: 20230317, end: 20230722
  18. LENALIDOMIDE [Concomitant]
     Active Substance: LENALIDOMIDE
     Indication: Diffuse large B-cell lymphoma
     Dosage: 15 MG, 1X/DAY
     Route: 048
     Dates: start: 20230317, end: 20230722

REACTIONS (28)
  - Death [Fatal]
  - Pneumonia [Not Recovered/Not Resolved]
  - Hypokalaemia [Recovered/Resolved]
  - Cardiac failure [Not Recovered/Not Resolved]
  - Hyperkalaemia [Recovered/Resolved]
  - Chronic hepatitis B [Not Recovered/Not Resolved]
  - Acid-base balance disorder mixed [Recovered/Resolved]
  - Respiratory failure [Not Recovered/Not Resolved]
  - Pseudomembranous colitis [Not Recovered/Not Resolved]
  - Neutrophil count decreased [Recovered/Resolved]
  - Decreased appetite [Not Recovered/Not Resolved]
  - Pyrexia [Recovered/Resolved]
  - Anaemia [Recovered/Resolved]
  - Platelet count decreased [Recovered/Resolved]
  - Hypoalbuminaemia [Recovered/Resolved]
  - Blood lactate dehydrogenase increased [Not Recovered/Not Resolved]
  - Hypocalcaemia [Recovered/Resolved]
  - Hypoproteinaemia [Not Recovered/Not Resolved]
  - Hepatic function abnormal [Not Recovered/Not Resolved]
  - Coagulopathy [Recovered/Resolved]
  - White blood cell count decreased [Recovered/Resolved]
  - Lymphocyte count decreased [Recovered/Resolved]
  - Alkalosis [Recovered/Resolved]
  - Blood bilirubin increased [Recovered/Resolved]
  - Ligament sprain [Not Recovered/Not Resolved]
  - Tendon calcification [Not Recovered/Not Resolved]
  - COVID-19 [Not Recovered/Not Resolved]
  - Blood glucose increased [Recovered/Resolved]

NARRATIVE: CASE EVENT DATE: 20230410
